FAERS Safety Report 22670479 (Version 2)
Quarter: 2023Q4

REPORT INFORMATION
  Report Type: Other
  Country: JP (occurrence: JP)
  Receive Date: 20230705
  Receipt Date: 20231010
  Transmission Date: 20240110
  Serious: Yes (Hospitalization)
  Sender: FDA-Public Use
  Company Number: JP-CHUGAI-2023024058AA

PATIENT
  Age: 77 Year
  Sex: Male
  Weight: 58.2 kg

DRUGS (9)
  1. POLIVY [Suspect]
     Active Substance: POLATUZUMAB VEDOTIN-PIIQ
     Indication: Follicular lymphoma
     Dosage: 100 MILLIGRAM
     Route: 041
     Dates: start: 20230503, end: 20230616
  2. RITUXIMAB [Concomitant]
     Active Substance: RITUXIMAB
     Indication: Follicular lymphoma
     Dosage: 600 MILLIGRAM
     Route: 041
     Dates: start: 20230508, end: 20230615
  3. CYCLOPHOSPHAMIDE [Concomitant]
     Active Substance: CYCLOPHOSPHAMIDE
     Indication: Follicular lymphoma
     Dosage: 1200 MILLIGRAM, SINGLE
     Route: 041
     Dates: start: 20230503, end: 20230503
  4. CYCLOPHOSPHAMIDE [Concomitant]
     Active Substance: CYCLOPHOSPHAMIDE
     Dosage: 925  MILLIGRAM
     Route: 041
     Dates: start: 20230525, end: 20230616
  5. DOXORUBICIN HYDROCHLORIDE [Concomitant]
     Active Substance: DOXORUBICIN HYDROCHLORIDE
     Indication: Follicular lymphoma
     Dosage: 80 MG, SINGLE
     Route: 041
     Dates: start: 20230503, end: 20230503
  6. DOXORUBICIN HYDROCHLORIDE [Concomitant]
     Active Substance: DOXORUBICIN HYDROCHLORIDE
     Dosage: 62 MILLIGRAM, SINGLE
     Route: 041
     Dates: start: 20230525, end: 20230616
  7. PREDNISOLONE [Concomitant]
     Active Substance: PREDNISOLONE
     Indication: Follicular lymphoma
     Dosage: 100 MILLIGRAM, QD
     Route: 065
     Dates: start: 20230503, end: 20230507
  8. PREDNISOLONE [Concomitant]
     Active Substance: PREDNISOLONE
     Dosage: 100 MILLIGRAM, QD
     Route: 065
     Dates: start: 20230525, end: 20230529
  9. PREDNISOLONE [Concomitant]
     Active Substance: PREDNISOLONE
     Dosage: 100 MILLIGRAM, QD
     Route: 065
     Dates: start: 20230616, end: 20230620

REACTIONS (1)
  - Malaise [Recovered/Resolved]

NARRATIVE: CASE EVENT DATE: 20230623
